FAERS Safety Report 9741804 (Version 2)
Quarter: 2013Q4

REPORT INFORMATION
  Report Type: Spontaneous
  Country: JP (occurrence: JP)
  Receive Date: 20131210
  Receipt Date: 20131211
  Transmission Date: 20140711
  Serious: Yes (Hospitalization, Other)
  Sender: FDA-Public Use
  Company Number: PHHY2013JP142775

PATIENT
  Age: 74 Year
  Sex: Male

DRUGS (1)
  1. CICLOSPORIN [Suspect]
     Indication: PSORIASIS
     Route: 048
     Dates: start: 1993, end: 2008

REACTIONS (5)
  - Squamous cell carcinoma [Unknown]
  - Mass [Unknown]
  - Ulcer [Unknown]
  - Lentigo [Unknown]
  - Renal disorder [Unknown]
